FAERS Safety Report 19642132 (Version 1)
Quarter: 2021Q3

REPORT INFORMATION
  Report Type: Spontaneous
  Country: IT (occurrence: IT)
  Receive Date: 20210731
  Receipt Date: 20210731
  Transmission Date: 20211014
  Serious: Yes (Hospitalization, Other)
  Sender: FDA-Public Use
  Company Number: IT-LUPIN PHARMACEUTICALS INC.-2021-13407

PATIENT
  Age: 65 Year
  Sex: Male

DRUGS (4)
  1. TOBRAMYCIN. [Suspect]
     Active Substance: TOBRAMYCIN
     Indication: KERATITIS
     Dosage: UNK, EYE OINTMENT
     Route: 061
  2. OFLOXACIN. [Suspect]
     Active Substance: OFLOXACIN
     Indication: KERATITIS
     Dosage: UNK, QID
     Route: 061
  3. AMOXICILLIN + CLAVULANIC ACID [Suspect]
     Active Substance: AMOXICILLIN\CLAVULANIC ACID
     Indication: KERATITIS
     Dosage: THREE TIMES A DAY
     Route: 048
  4. DEXAMETHASONE. [Suspect]
     Active Substance: DEXAMETHASONE
     Indication: KERATITIS
     Dosage: UNK, EYE OINTMENT
     Route: 061

REACTIONS (5)
  - Corneal oedema [Recovering/Resolving]
  - Keratitis fungal [Recovering/Resolving]
  - Condition aggravated [Recovering/Resolving]
  - Ulcerative keratitis [Recovering/Resolving]
  - Corneal pigmentation [Recovering/Resolving]
